FAERS Safety Report 5153204-7 (Version None)
Quarter: 2006Q4

REPORT INFORMATION
  Report Type: 
  Country: None (occurrence: None)
  Receive Date: 20061114
  Receipt Date: 20061103
  Transmission Date: 20070319
  Serious: Yes (Death, Hospitalization, Disabling)
  Sender: FDA-Public Use
  Company Number: GXKR2006GB07099

PATIENT
  Age: 67 Year
  Sex: Male

DRUGS (6)
  1. AMIODARONE HCL [Suspect]
     Indication: ATRIAL FIBRILLATION
     Dosage: ORAL
     Route: 048
     Dates: start: 20060201
  2. BERIPLEX HS (FACTOR II (PROTHROMBIN), FACTOR VII (PROCO...) [Suspect]
     Dosage: 2000 IU, INTRAVENOUS
     Route: 042
     Dates: start: 20060930
  3. BENDROFLUAZIDE (BENDROFLUMETHIAZIDE) [Concomitant]
  4. IRBESARTAN [Concomitant]
  5. LISINOPRIL [Concomitant]
  6. WARFARIN SODIUM [Concomitant]

REACTIONS (4)
  - GENERAL PHYSICAL HEALTH DETERIORATION [None]
  - HYPOKINESIA [None]
  - PULMONARY EMBOLISM [None]
  - PULMONARY FIBROSIS [None]
